FAERS Safety Report 5925384-4 (Version None)
Quarter: 2008Q4

REPORT INFORMATION
  Report Type: 
  Country: None (occurrence: None)
  Receive Date: 20081020
  Receipt Date: 20081020
  Transmission Date: 20090506
  Serious: Yes (Death)
  Sender: FDA-Public Use
  Company Number: None

PATIENT
  Age: 46 Year
  Sex: Female
  Weight: 49.8957 kg

DRUGS (6)
  1. LYRICA [Suspect]
     Indication: PAIN
     Dates: start: 20080817, end: 20080917
  2. ZOLOFT [Concomitant]
     Indication: FIBROMYALGIA
  3. CRESTOR [Concomitant]
  4. LORTAB [Concomitant]
  5. PHENERGAN HCL [Concomitant]
  6. DEMEROL [Concomitant]

REACTIONS (8)
  - ACUTE RESPIRATORY DISTRESS SYNDROME [None]
  - CONDITION AGGRAVATED [None]
  - FALL [None]
  - NAUSEA [None]
  - PAIN [None]
  - RESPIRATORY ARREST [None]
  - RESTLESSNESS [None]
  - VOMITING [None]
